FAERS Safety Report 7058154-7 (Version None)
Quarter: 2010Q4

REPORT INFORMATION
  Report Type: 
  Country: None (occurrence: None)
  Receive Date: 20101022
  Receipt Date: 20101015
  Transmission Date: 20110411
  Serious: Yes (Congenital Anomaly)
  Sender: FDA-Public Use
  Company Number: US-B.I. PHARMACEUTICALS,INC./RIDGEFIELD-2010-BP-11575BP

PATIENT
  Sex: Male
  Weight: 3 kg

DRUGS (8)
  1. VIRAMUNE [Suspect]
     Indication: DRUG EXPOSURE DURING PREGNANCY
     Route: 064
     Dates: end: 20101001
  2. NELFINAVIR [Concomitant]
     Indication: DRUG EXPOSURE DURING PREGNANCY
     Route: 064
     Dates: end: 20100715
  3. ETRAVIRINE [Concomitant]
     Indication: DRUG EXPOSURE DURING PREGNANCY
     Dosage: 400 MG
     Route: 064
     Dates: end: 20100715
  4. RALTEGRAVIR [Concomitant]
     Indication: DRUG EXPOSURE DURING PREGNANCY
     Dosage: 800 MG
     Route: 064
  5. TRUVADA [Concomitant]
     Indication: DRUG EXPOSURE DURING PREGNANCY
     Route: 064
  6. DARUNAVIR [Concomitant]
     Indication: DRUG EXPOSURE DURING PREGNANCY
     Dosage: 1200 MG
     Route: 064
  7. RITONAVIR [Concomitant]
     Indication: DRUG EXPOSURE DURING PREGNANCY
     Dosage: 200 MG
     Route: 064
  8. ZIDOVUDINE [Concomitant]
     Indication: DRUG EXPOSURE DURING PREGNANCY
     Dosage: 2000 MG
     Route: 064
     Dates: end: 20101001

REACTIONS (1)
  - CONGENITAL HIP DEFORMITY [None]
